FAERS Safety Report 4680931-8 (Version None)
Quarter: 2005Q2

REPORT INFORMATION
  Report Type: 
  Country: None (occurrence: None)
  Receive Date: 20050603
  Receipt Date: 20050601
  Transmission Date: 20051028
  Serious: Yes (Life-Threatening)
  Sender: FDA-Public Use
  Company Number: US-BRISTOL-MYERS SQUIBB COMPANY-12990081

PATIENT

DRUGS (3)
  1. CETUXIMAB [Suspect]
     Indication: SQUAMOUS CELL CARCINOMA
     Dates: start: 20050524, end: 20050524
  2. DOCETAXEL [Suspect]
     Indication: SQUAMOUS CELL CARCINOMA
     Dates: start: 20050524, end: 20050524
  3. RADIATION THERAPY [Suspect]
     Indication: SQUAMOUS CELL CARCINOMA
     Dates: start: 20050530, end: 20050530

REACTIONS (1)
  - MUCOSAL INFLAMMATION [None]
